FAERS Safety Report 8248135-X (Version None)
Quarter: 2012Q1

REPORT INFORMATION
  Report Type: 
  Country: None (occurrence: None)
  Receive Date: 20120330
  Receipt Date: 20120323
  Transmission Date: 20120608
  Serious: Yes (Life-Threatening, Other)
  Sender: FDA-Public Use
  Company Number: US-BAYER-2011-071950

PATIENT
  Age: 35 Year
  Sex: Female
  Weight: 52.154 kg

DRUGS (16)
  1. YASMIN [Suspect]
     Indication: PREMENSTRUAL SYNDROME
  2. FLUCONAZOLE [Concomitant]
     Dosage: 150 MG, UNK
     Route: 048
     Dates: start: 20080101, end: 20090701
  3. WELLBUTRIN [Concomitant]
     Dosage: UNK
     Dates: start: 20090701
  4. YASMIN [Suspect]
     Indication: CONTRACEPTION
  5. DROSPIRENONE AND ETHINYL ESTRADIOL [Suspect]
  6. SINGULAIR [Concomitant]
     Dosage: 10 MG, QD
     Route: 048
     Dates: start: 20090714
  7. YAZ [Suspect]
     Indication: CONTRACEPTION
     Dosage: UNK
     Dates: start: 20060101, end: 20090101
  8. IBUPROFEN [Concomitant]
     Indication: PAIN
     Dosage: 800 MG, TID
     Route: 048
     Dates: start: 20080101, end: 20090101
  9. CYCLOBENZAPRINE HCL [Concomitant]
     Indication: MUSCLE SPASMS
     Dosage: 10 MG, ? TO 1 3 X DAILY
     Route: 048
  10. YAZ [Suspect]
     Indication: PREMENSTRUAL SYNDROME
  11. ACETAMINOPHEN AND HYDROCODONE BITARTRATE [Concomitant]
     Dosage: 5-500 1 Q4H
     Route: 048
     Dates: start: 20080101, end: 20090701
  12. BUPROPION HCL [Concomitant]
     Dosage: 100 MG, UNK
     Route: 048
     Dates: start: 20090401, end: 20090701
  13. GUAIFENESIN [Concomitant]
     Indication: COUGH
     Dosage: 1-2 TABS Q12 H
     Route: 048
  14. TRAMADOL HCL [Concomitant]
     Indication: PAIN
     Dosage: 3 -4 X DAY,  PRN
     Route: 048
     Dates: start: 20090501, end: 20090701
  15. TEMAZEPAM [Concomitant]
     Indication: INSOMNIA
     Dosage: 15 MG, 1 OR 2 AT BEDTIME
     Route: 048
  16. NASAREL [Concomitant]
     Dosage: 2 SPRAYS TO EACH NOSTRIL, BID
     Dates: start: 20090714

REACTIONS (6)
  - GALLBLADDER NON-FUNCTIONING [None]
  - CHOLECYSTITIS CHRONIC [None]
  - GENERAL PHYSICAL HEALTH DETERIORATION [None]
  - INJURY [None]
  - INTERNAL INJURY [None]
  - PAIN [None]
